FAERS Safety Report 14122988 (Version 1)
Quarter: 2017Q4

REPORT INFORMATION
  Report Type: Spontaneous
  Country: US (occurrence: US)
  Receive Date: 20171025
  Receipt Date: 20171025
  Transmission Date: 20180321
  Serious: Yes (Hospitalization, Other)
  Sender: FDA-Public Use
  Company Number: US-SUNOVION-2017SUN004577

PATIENT
  Sex: Male
  Weight: 133.79 kg

DRUGS (1)
  1. LATUDA [Suspect]
     Active Substance: LURASIDONE HYDROCHLORIDE
     Indication: SCHIZOPHRENIA
     Dosage: 40 MG, UNK
     Route: 048

REACTIONS (5)
  - Loss of consciousness [Recovered/Resolved]
  - Malaise [Unknown]
  - Confusional state [Unknown]
  - Hyperhidrosis [Unknown]
  - Dyspnoea [Unknown]
